FAERS Safety Report 8476383-2 (Version None)
Quarter: 2012Q2

REPORT INFORMATION
  Report Type: 
  Country: None (occurrence: None)
  Receive Date: 20120628
  Receipt Date: 20120621
  Transmission Date: 20120825
  Serious: Yes (Hospitalization)
  Sender: FDA-Public Use
  Company Number: US-JNJFOC-20120611717

PATIENT
  Sex: Male
  Weight: 43.2 kg

DRUGS (5)
  1. METHOTREXATE [Concomitant]
  2. METRONIDAZOLE [Concomitant]
  3. INFLIXIMAB, RECOMBINANT [Suspect]
     Indication: CROHN'S DISEASE
     Route: 042
     Dates: start: 20120213
  4. PREDNISONE TAB [Concomitant]
  5. INFLIXIMAB, RECOMBINANT [Suspect]
     Route: 042
     Dates: start: 20120529

REACTIONS (1)
  - CROHN'S DISEASE [None]
